APPROVED DRUG PRODUCT: TECHNEGAS KIT
Active Ingredient: TECHNETIUM TC-99M LABELED CARBON
Strength: N/A
Dosage Form/Route: AEROSOL;INHALATION
Application: N022335 | Product #001
Applicant: CYCLOMEDICA AUSTRALIA PTY LTD
Approved: Sep 29, 2023 | RLD: Yes | RS: Yes | Type: RX

EXCLUSIVITY:
Code: NP | Date: Sep 29, 2026